FAERS Safety Report 8445535-X (Version None)
Quarter: 2012Q2

REPORT INFORMATION
  Report Type: 
  Country: None (occurrence: None)
  Receive Date: 20120618
  Receipt Date: 20120613
  Transmission Date: 20120825
  Serious: Yes (Other)
  Sender: FDA-Public Use
  Company Number: CA-MERCK-1206USA02189

PATIENT
  Age: 46 Year
  Sex: Male

DRUGS (12)
  1. IMOVANE [Suspect]
     Route: 065
  2. MARAVIROC [Suspect]
     Route: 065
  3. OXYCONTIN [Concomitant]
     Route: 065
  4. PREZISTA [Suspect]
     Route: 065
  5. ISENTRESS [Suspect]
     Route: 048
  6. EFFEXOR XR [Concomitant]
     Route: 065
  7. GABAPENTIN [Concomitant]
     Route: 065
  8. RITONAVIR [Suspect]
     Route: 065
  9. INTELENCE [Suspect]
     Route: 065
  10. NORTRIPTYLINE [Concomitant]
     Route: 065
  11. OXYCODONE [Concomitant]
     Route: 065
  12. BARACLUDE [Suspect]
     Route: 065

REACTIONS (4)
  - LOWER LIMB FRACTURE [None]
  - SOMNAMBULISM [None]
  - JOINT DISLOCATION [None]
  - FALL [None]
